FAERS Safety Report 13821921 (Version 1)
Quarter: 2017Q3

REPORT INFORMATION
  Report Type: Report from Study
  Country: US (occurrence: US)
  Receive Date: 20170801
  Receipt Date: 20170801
  Transmission Date: 20171127
  Serious: Yes (Death, Other)
  Sender: FDA-Public Use
  Company Number: PHEH2017US023789

PATIENT
  Sex: Male

DRUGS (2)
  1. AFINITOR [Suspect]
     Active Substance: EVEROLIMUS
     Indication: RENAL CELL CARCINOMA
     Dosage: UNK
     Route: 048
  2. LENVATINIB [Suspect]
     Active Substance: LENVATINIB
     Indication: RENAL CELL CARCINOMA
     Route: 065

REACTIONS (6)
  - Renal cell carcinoma [Fatal]
  - Pleural effusion [Unknown]
  - Musculoskeletal chest pain [Unknown]
  - Malignant neoplasm progression [Fatal]
  - Ascites [Unknown]
  - Fatigue [Unknown]
